FAERS Safety Report 8831951 (Version 2)
Quarter: 2012Q4

REPORT INFORMATION
  Report Type: Report from Study
  Country: GB (occurrence: GB)
  Receive Date: 20121009
  Receipt Date: 20121015
  Transmission Date: 20130627
  Serious: Yes (Hospitalization)
  Sender: FDA-Public Use
  Company Number: GB-PFIZER INC-2012246046

PATIENT
  Age: 65 Year
  Sex: Male
  Weight: 105 kg

DRUGS (8)
  1. LIPITOR [Suspect]
     Dosage: 20 mg, UNK
     Route: 048
  2. EPIRUBICIN HCL [Suspect]
     Indication: GASTRIC CANCER
     Dosage: 110 mg, UNK
     Dates: start: 20120509
  3. BEVACIZUMAB [Suspect]
     Indication: GASTRIC CANCER
     Dosage: 789 mg, UNK
     Route: 042
     Dates: start: 20120509
  4. CAPECITABINE [Suspect]
     Indication: GASTRIC CANCER
     Dosage: 1 in 1 D
     Route: 048
     Dates: start: 20120509, end: 20120514
  5. CISPLATIN [Suspect]
     Indication: GASTRIC CANCER
     Dosage: 132 mg, UNK
     Route: 042
     Dates: start: 20120509
  6. BENDROFLUMETHIAZIDE [Suspect]
     Dosage: 2.5 mg, UNK
     Route: 048
  7. CANDESARTAN [Suspect]
     Dosage: 4 mg, UNK
     Route: 048
  8. ACETYLSALICYLIC ACID [Suspect]
     Dosage: 75 mg, UNK
     Route: 048

REACTIONS (1)
  - Presyncope [Recovered/Resolved]
